FAERS Safety Report 6181412-5 (Version None)
Quarter: 2009Q2

REPORT INFORMATION
  Report Type: 
  Country: None (occurrence: None)
  Receive Date: 20090501
  Receipt Date: 20090109
  Transmission Date: 20091009
  Serious: No
  Sender: FDA-Public Use
  Company Number: 2008001000

PATIENT
  Age: 76 Year
  Sex: Male
  Weight: 117.9352 kg

DRUGS (3)
  1. TREANDA [Suspect]
     Indication: CHRONIC LYMPHOCYTIC LEUKAEMIA
     Dosage: (50 MG/M2, Q 4 WEEKS DAY 1 + 2 OF CYCLE) , INTRAVENOUS
     Route: 042
     Dates: start: 20081014
  2. RITUXAN [Suspect]
     Indication: CHRONIC LYMPHOCYTIC LEUKAEMIA
     Dosage: 13.3929 MG/M2 (375 MG/M2, 1 IN 4 WK) , INTRAVENOUS
     Route: 042
  3. NEULASTA [Concomitant]

REACTIONS (3)
  - INFUSION SITE ERYTHEMA [None]
  - INFUSION SITE EXTRAVASATION [None]
  - INFUSION SITE SWELLING [None]
